FAERS Safety Report 4649223-7 (Version None)
Quarter: 2005Q2

REPORT INFORMATION
  Report Type: 
  Country: None (occurrence: None)
  Receive Date: 20050429
  Receipt Date: 20050418
  Transmission Date: 20051028
  Serious: Yes (Hospitalization)
  Sender: FDA-Public Use
  Company Number: FR-BRISTOL-MYERS SQUIBB COMPANY-12937546

PATIENT
  Age: 30 Year
  Sex: Female
  Weight: 75 kg

DRUGS (4)
  1. FUNGIZONE [Suspect]
     Indication: ORAL CANDIDIASIS
     Dosage: ^3 COFFEE SPOONS/D^
     Dates: start: 20050129, end: 20050204
  2. TERCIAN [Suspect]
     Indication: MANIA
     Dosage: 25-1-05 150 MG; 26-1-05 200 MG; 28-1-05 300 MG; 29-1-05 350 MG; 01-2-05 125 MG; 04-FEB-05 TABS.
     Dates: start: 20050124, end: 20050205
  3. RIVATRIL [Suspect]
     Indication: MANIA
     Dosage: 25-JAN-2005 3 MG/DAY, 29-JAN-2005 5 MG/DAY; 04-FEB-2005 2.5 MG/DAY.
     Dates: start: 20050125, end: 20050205
  4. DEPAKOTE [Suspect]
     Indication: MANIA
     Dosage: 27-JAN-2005 1.5 GRAMS/D; 28-JAN-2005 2 GRAMS/D.
     Dates: start: 20050126, end: 20050205

REACTIONS (8)
  - EOSINOPHILIA [None]
  - LEUKOPENIA [None]
  - MANIA [None]
  - PRURITUS [None]
  - PYREXIA [None]
  - RASH MACULO-PAPULAR [None]
  - RASH PRURITIC [None]
  - TOXIC SKIN ERUPTION [None]
